FAERS Safety Report 4873424-6 (Version None)
Quarter: 2005Q4

REPORT INFORMATION
  Report Type: 
  Country: None (occurrence: None)
  Receive Date: 20051201
  Receipt Date: 20050820
  Transmission Date: 20060501
  Serious: No
  Sender: FDA-Public Use
  Company Number: 2005PV001322

PATIENT
  Age: 62 Year
  Sex: Female

DRUGS (16)
  1. BYETTA [Suspect]
     Indication: DIABETES MELLITUS NON-INSULIN-DEPENDENT
     Dosage: SEE IMAGE
     Route: 058
     Dates: start: 20050715, end: 20050811
  2. BYETTA [Suspect]
     Indication: DIABETES MELLITUS NON-INSULIN-DEPENDENT
     Dosage: SEE IMAGE
     Route: 058
     Dates: start: 20050812, end: 20050901
  3. BYETTA [Suspect]
     Indication: DIABETES MELLITUS NON-INSULIN-DEPENDENT
     Dosage: SEE IMAGE
     Route: 058
     Dates: start: 20050901
  4. GLUCOPHAGE XR [Concomitant]
  5. AMARYL [Concomitant]
  6. NOVOLOG PEN [Concomitant]
  7. NOVOLOG MIX [Concomitant]
  8. COREG [Concomitant]
  9. ALTACE [Concomitant]
  10. PLAVIX [Concomitant]
  11. NORVASC [Concomitant]
  12. CRESTOR [Concomitant]
  13. TRICOR [Concomitant]
  14. TOPAMAX [Concomitant]
  15. CALCIUM AND MAGNESIUM [Concomitant]
  16. ASPIRIN [Concomitant]

REACTIONS (2)
  - DYSGEUSIA [None]
  - NAUSEA [None]
